FAERS Safety Report 9521143 (Version 1)
Quarter: 2013Q3

REPORT INFORMATION
  Report Type: Spontaneous
  Country: US (occurrence: None)
  Receive Date: 20130911
  Receipt Date: 20130911
  Transmission Date: 20140515
  Serious: No
  Sender: FDA-Public Use
  Company Number: AEUSA201200490

PATIENT
  Age: 8 Year
  Sex: Male

DRUGS (1)
  1. GAMUNEX [Suspect]

REACTIONS (3)
  - Fatigue [None]
  - Pyrexia [None]
  - Night sweats [None]
